FAERS Safety Report 6051972-3 (Version None)
Quarter: 2009Q1

REPORT INFORMATION
  Report Type: 
  Country: None (occurrence: None)
  Receive Date: 20090126
  Receipt Date: 20090116
  Transmission Date: 20090719
  Serious: Yes (Other)
  Sender: FDA-Public Use
  Company Number: US-JNJFOC-20090104298

PATIENT
  Age: 65 Year
  Sex: Female

DRUGS (5)
  1. EXTRA STRENGTH TYLENOL [Suspect]
     Route: 048
  2. EXTRA STRENGTH TYLENOL [Suspect]
     Indication: MYALGIA
     Route: 048
  3. CELLCEPT [Concomitant]
     Indication: MULTIPLE SCLEROSIS
  4. AMANTADINE HCL [Concomitant]
     Indication: MULTIPLE SCLEROSIS
  5. BACLOFEN [Concomitant]
     Indication: MULTIPLE SCLEROSIS

REACTIONS (1)
  - HYPOACUSIS [None]
